FAERS Safety Report 7063139-0 (Version None)
Quarter: 2010Q4

REPORT INFORMATION
  Report Type: 
  Country: None (occurrence: None)
  Receive Date: 20101026
  Receipt Date: 20100521
  Transmission Date: 20110411
  Serious: No
  Sender: FDA-Public Use
  Company Number: US-PFIZER INC-2010065054

PATIENT
  Sex: Female
  Weight: 56.689 kg

DRUGS (5)
  1. LIPITOR [Suspect]
     Indication: BLOOD CHOLESTEROL INCREASED
     Dosage: 80 MG, DAILY
     Route: 048
     Dates: start: 20090101
  2. AMLODIPINE BESYLATE/VALSARTAN [Suspect]
     Indication: HYPERTENSION
     Dosage: 5/160 MG, UNK
     Dates: end: 20100520
  3. SYNTHROID [Concomitant]
     Indication: THYROID DISORDER
     Dosage: 88 MG, UNK
  4. PLAVIX [Concomitant]
     Dosage: UNK
  5. ACETYLSALICYLIC ACID [Concomitant]
     Dosage: UNK

REACTIONS (3)
  - ASTHENIA [None]
  - DIZZINESS [None]
  - FATIGUE [None]
